FAERS Safety Report 21917998 (Version 2)
Quarter: 2023Q2

REPORT INFORMATION
  Report Type: Spontaneous
  Country: US (occurrence: None)
  Receive Date: 20230127
  Receipt Date: 20230426
  Transmission Date: 20230722
  Serious: No
  Sender: FDA-Public Use
  Company Number: US-Ultragenyx Pharmaceutical Inc.-US-UGNX-22-00799

PATIENT
  Age: 3 Year
  Sex: Female
  Weight: 18.6 kg

DRUGS (4)
  1. DOJOLVI [Suspect]
     Active Substance: TRIHEPTANOIN
     Indication: Very long-chain acyl-coenzyme A dehydrogenase deficiency
     Dosage: 5 ML 3X/DAY, 2 ML 2X/DAY
     Route: 048
     Dates: start: 20220115, end: 20221017
  2. DOJOLVI [Suspect]
     Active Substance: TRIHEPTANOIN
     Route: 048
     Dates: start: 2022
  3. DOJOLVI [Suspect]
     Active Substance: TRIHEPTANOIN
     Dosage: 8 ML, TITRATING TO 50 ML
     Route: 048
  4. DOJOLVI [Suspect]
     Active Substance: TRIHEPTANOIN
     Dosage: BEFORE STOMACH BUG

REACTIONS (5)
  - Gastroenteritis viral [Recovered/Resolved]
  - Flatulence [Not Recovered/Not Resolved]
  - Abdominal distension [Not Recovered/Not Resolved]
  - Diarrhoea [Recovered/Resolved]
  - Abdominal pain upper [Not Recovered/Not Resolved]

NARRATIVE: CASE EVENT DATE: 20221018
